FAERS Safety Report 8129013-3 (Version None)
Quarter: 2012Q1

REPORT INFORMATION
  Report Type: 
  Country: None (occurrence: None)
  Receive Date: 20120210
  Receipt Date: 20110801
  Transmission Date: 20120608
  Serious: No
  Sender: FDA-Public Use
  Company Number: US-BRISTOL-MYERS SQUIBB COMPANY-15937949

PATIENT
  Age: 57 Year
  Sex: Female

DRUGS (5)
  1. KLONOPIN [Concomitant]
  2. ORENCIA [Suspect]
     Dosage: INFUSION
  3. MESTINON [Concomitant]
  4. TRAMADOL HYDROCHLORIDE AND ACETAMINOPHEN [Concomitant]
     Dosage: 1DF=37.5-3MG
  5. IMMUNE GLOBULIN IV [Concomitant]
     Indication: MYASTHENIA GRAVIS

REACTIONS (1)
  - LOCALISED INFECTION [None]
